FAERS Safety Report 6716154-8 (Version None)
Quarter: 2010Q2

REPORT INFORMATION
  Report Type: 
  Country: None (occurrence: None)
  Receive Date: 20100507
  Receipt Date: 20100505
  Transmission Date: 20101027
  Serious: Yes (Hospitalization, Other)
  Sender: FDA-Public Use
  Company Number: US-MERCK-0704USA03251

PATIENT
  Age: 57 Year
  Sex: Female

DRUGS (10)
  1. FOSAMAX [Suspect]
     Indication: OSTEOPOROSIS
     Route: 048
     Dates: start: 19970401, end: 19970507
  2. FOSAMAX [Suspect]
     Route: 048
     Dates: start: 19970819, end: 19990101
  3. FOSAMAX [Suspect]
     Route: 048
     Dates: start: 20030205, end: 20040101
  4. ZOMETA [Suspect]
     Indication: OSTEOPOROSIS
     Route: 042
     Dates: start: 20010101
  5. ZOMETA [Suspect]
     Route: 042
     Dates: start: 20020705, end: 20050101
  6. ZOMETA [Suspect]
     Route: 042
     Dates: start: 20061031
  7. ZOMETA [Suspect]
     Indication: HYPERGAMMAGLOBULINAEMIA BENIGN MONOCLONAL
     Route: 042
     Dates: start: 20010101
  8. ZOMETA [Suspect]
     Route: 042
     Dates: start: 20020705, end: 20050101
  9. ZOMETA [Suspect]
     Route: 042
     Dates: start: 20061031
  10. CALCIUM (UNSPECIFIED) [Concomitant]
     Route: 065

REACTIONS (10)
  - ABSCESS [None]
  - ANXIETY [None]
  - ARTHRALGIA [None]
  - CHEST PAIN [None]
  - CONSTIPATION [None]
  - DEPRESSION [None]
  - DIARRHOEA [None]
  - FISTULA [None]
  - HAEMATURIA [None]
  - OSTEONECROSIS OF JAW [None]
